FAERS Safety Report 13741339 (Version 10)
Quarter: 2019Q1

REPORT INFORMATION
  Report Type: Spontaneous
  Country: FR (occurrence: FR)
  Receive Date: 20170711
  Receipt Date: 20190204
  Transmission Date: 20190417
  Serious: Yes (Hospitalization, Other)
  Sender: FDA-Public Use
  Company Number: FR-PFIZER INC-2017293056

PATIENT
  Age: 43 Year
  Sex: Male

DRUGS (37)
  1. SOLU-MEDROL [Suspect]
     Active Substance: METHYLPREDNISOLONE SODIUM SUCCINATE
     Dosage: 160 MG, QD
     Route: 042
     Dates: start: 2017, end: 20170609
  2. EUPANTOL [Suspect]
     Active Substance: PANTOPRAZOLE SODIUM
     Dosage: 40 MG, QD
     Route: 048
     Dates: start: 2017
  3. CANCIDAS [Suspect]
     Active Substance: CASPOFUNGIN ACETATE
     Indication: FUNGAL INFECTION
     Dosage: 70 MG, QD
     Route: 042
     Dates: start: 201703
  4. ACUPAN [Suspect]
     Active Substance: NEFOPAM HYDROCHLORIDE
     Indication: PAIN
     Dosage: 20 MG, Q6HR
     Route: 042
     Dates: start: 2017
  5. TIORFAN [Suspect]
     Active Substance: RACECADOTRIL
     Indication: DIARRHOEA
     Dosage: 600 MG, QD
     Route: 048
     Dates: start: 2017
  6. AMIKACINE [Suspect]
     Active Substance: AMIKACIN
     Dosage: 20 MG, 4X/DAY
     Route: 065
     Dates: start: 2017
  7. ZYVOXID [Suspect]
     Active Substance: LINEZOLID
     Dosage: 600 MG, Q12H
     Route: 042
     Dates: start: 201703, end: 20170430
  8. AMIKACINE [Suspect]
     Active Substance: AMIKACIN
     Dosage: UNK
     Route: 042
     Dates: start: 20170607, end: 20170610
  9. BACTRIM [Suspect]
     Active Substance: SULFAMETHOXAZOLE\TRIMETHOPRIM
     Indication: PNEUMOCYSTIS JIROVECII PNEUMONIA
     Dosage: 800 MG, QD
     Route: 048
     Dates: start: 201703, end: 20170526
  10. AMIKACINE [Suspect]
     Active Substance: AMIKACIN
     Indication: PAIN
     Dosage: UNK
     Route: 042
     Dates: start: 20170403, end: 20170408
  11. DITROPAN [Suspect]
     Active Substance: OXYBUTYNIN CHLORIDE
     Dosage: 5 MG, TID
     Route: 048
     Dates: start: 2017, end: 20170509
  12. AMLOR [Concomitant]
     Active Substance: AMLODIPINE BESYLATE
     Indication: EPILEPSY
     Dosage: 1000 MG, QD
     Route: 048
     Dates: start: 20170526, end: 20170531
  13. SMOFKABIVEN [Suspect]
     Active Substance: AMINO ACIDS\DEXTROSE\ELECTROLYTES NOS\SOYBEAN OIL
     Indication: PARENTERAL NUTRITION
     Dosage: 80 ML, Q1HR (1920ML DAILY)
     Route: 042
     Dates: start: 2017, end: 2017
  14. CELLCEPT [Suspect]
     Active Substance: MYCOPHENOLATE MOFETIL\MYCOPHENOLATE MOFETIL HYDROCHLORIDE
     Indication: PROPHYLAXIS AGAINST TRANSPLANT REJECTION
     Dosage: 2000 MG, QD
     Route: 048
     Dates: start: 2017
  15. MAGNESIUM ALGINATE/SODIUM ALGINATE [Suspect]
     Active Substance: MAGNESIUM ALGINATE\SODIUM ALGINATE
     Indication: GASTROOESOPHAGEAL REFLUX DISEASE
     Dosage: 1 DF, EVERY 8 HOURS
     Route: 048
     Dates: start: 2017
  16. RAMIPRIL. [Concomitant]
     Active Substance: RAMIPRIL
     Indication: PROPHYLAXIS AGAINST TRANSPLANT REJECTION
     Dosage: 2000 MG, QD
     Route: 048
     Dates: start: 20170531
  17. PARACETAMOL [Suspect]
     Active Substance: ACETAMINOPHEN
     Indication: PYREXIA
  18. SPASFON (PHLOROGLUCINOL) [Suspect]
     Active Substance: PHLOROGLUCINOL
     Indication: ABDOMINAL PAIN
     Dosage: UNK UNK, QD
     Route: 048
     Dates: start: 2017
  19. SPASFON (PHLOROGLUCINOL) [Suspect]
     Active Substance: PHLOROGLUCINOL
     Indication: PAIN
  20. AMIKACINE [Suspect]
     Active Substance: AMIKACIN
     Dosage: UNK
     Route: 042
     Dates: start: 20170421, end: 20170424
  21. AMIKACINE [Suspect]
     Active Substance: AMIKACIN
     Dosage: UNK
     Route: 042
     Dates: start: 20170526, end: 20170529
  22. CYMEVAN [Interacting]
     Active Substance: GANCICLOVIR
     Indication: PROPHYLAXIS
     Dosage: UNK
     Route: 042
     Dates: start: 20170330, end: 20170504
  23. VANCOMYCIN [Concomitant]
     Active Substance: VANCOMYCIN
     Dosage: UNK
     Dates: start: 20170529
  24. HYDROCORTISONE. [Suspect]
     Active Substance: HYDROCORTISONE
     Dosage: UNK
  25. URSOLVAN [Suspect]
     Active Substance: URSODIOL
     Dosage: 200 MG, UNK
     Route: 048
     Dates: start: 20170331
  26. ZELITREX [Interacting]
     Active Substance: VALACYCLOVIR HYDROCHLORIDE
     Indication: PROPHYLAXIS
     Dosage: UNK
     Route: 048
     Dates: start: 20170504
  27. KEPPRA [Suspect]
     Active Substance: LEVETIRACETAM
     Indication: EPILEPSY
     Dosage: 1000 MG, QD
     Route: 048
     Dates: start: 20170422
  28. PARACETAMOL [Suspect]
     Active Substance: ACETAMINOPHEN
     Indication: PAIN
     Dosage: 3 G, QD
     Route: 048
     Dates: start: 2017
  29. GAVISCON [Suspect]
     Active Substance: ALUMINUM HYDROXIDE\MAGNESIUM CARBONATE
     Indication: GASTROOESOPHAGEAL REFLUX DISEASE
     Dosage: UNK UNK, TID   IF NEEDED
     Route: 048
     Dates: start: 2017
  30. ZERBAXA [Suspect]
     Active Substance: CEFTOLOZANE SULFATE\TAZOBACTAM SODIUM
     Indication: CELLULITIS
     Dosage: 3 G, QD
     Route: 042
     Dates: start: 20170331
  31. EUPRESSYL [Suspect]
     Active Substance: URAPIDIL
     Indication: HYPERTENSION
     Dosage: 2 MG, Q1HR
     Route: 042
     Dates: start: 201703, end: 20170330
  32. POTASSIUM BICARBONATE/SODIUM ALGINATE [Suspect]
     Active Substance: POTASSIUM BICARBONATE\SODIUM ALGINATE
     Indication: GASTROOESOPHAGEAL REFLUX DISEASE
     Dosage: UNK UNK, TID
     Route: 048
     Dates: start: 2017
  33. NEORAL [Suspect]
     Active Substance: CYCLOSPORINE
     Indication: PROPHYLAXIS AGAINST TRANSPLANT REJECTION
     Dosage: 40 MG, BID
     Route: 048
     Dates: start: 2017
  34. TIENAM [Suspect]
     Active Substance: CILASTATIN SODIUM\IMIPENEM
     Dosage: 500 MG, 3X/DAY (ONCE PER 8 HOURS)
     Route: 042
     Dates: start: 201703, end: 20170403
  35. BISOPROLOL [Concomitant]
     Active Substance: BISOPROLOL
     Indication: PROPHYLAXIS
     Dosage: UNK
     Route: 048
     Dates: start: 20170531
  36. WELLVONE [Concomitant]
     Active Substance: ATOVAQUONE
     Dosage: UNK
     Dates: start: 20170526
  37. TARGOCID [Concomitant]
     Active Substance: TEICOPLANIN
     Dosage: UNK
     Dates: start: 20170524, end: 20170529

REACTIONS (11)
  - Confusional state [Not Recovered/Not Resolved]
  - Laboratory test interference [None]
  - Roseolovirus test positive [None]
  - Brain scan abnormal [None]
  - CSF virus identified [None]
  - Pancytopenia [Recovered/Resolved]
  - Intentional product misuse [None]
  - Meningitis aseptic [None]
  - Generalised tonic-clonic seizure [None]
  - Marrow hyperplasia [None]
  - Drug interaction [Unknown]

NARRATIVE: CASE EVENT DATE: 20170329
